FAERS Safety Report 10178004 (Version 3)
Quarter: 2018Q1

REPORT INFORMATION
  Report Type: Report from Study
  Country: US (occurrence: US)
  Receive Date: 20140517
  Receipt Date: 20180125
  Transmission Date: 20180508
  Serious: Yes (Other)
  Sender: FDA-Public Use
  Company Number: US-ROCHE-1401488

PATIENT
  Sex: Male
  Weight: 60.4 kg

DRUGS (9)
  1. NUTROPIN AQ [Suspect]
     Active Substance: SOMATROPIN
     Indication: GROWTH HORMONE DEFICIENCY
     Route: 058
  2. VITAMIN D3 [Concomitant]
     Active Substance: CHOLECALCIFEROL
     Dosage: 1000 UNIT CAPSULE, DO NOT TAKE WITHIN 4 HOURS OF OTHER MEDICATIONS, CAN TAKE WITH FOOD
     Route: 048
  3. NUTROPIN AQ [Suspect]
     Active Substance: SOMATROPIN
     Indication: HYPOPITUITARISM
     Route: 058
  4. DELTASONE [Concomitant]
     Active Substance: PREDNISONE
     Dosage: 3 TABLETS PER DAY FOR 3 DAYS AND 2 TABLETS FOR 3 DAYS THEN 1 TABLET DAILY FOR 3 DAYS
     Route: 048
  5. NUTROPIN AQ [Suspect]
     Active Substance: SOMATROPIN
     Indication: BODY HEIGHT BELOW NORMAL
     Route: 058
  6. ERGOCALCIFEROL. [Concomitant]
     Active Substance: ERGOCALCIFEROL
     Dosage: 50000 UNIT CAPSULE, FOR 6 DOSES, DO NOT TAKE WITHIN 4 HOURS OF OTHER MEDICATIONS.
     Route: 048
  7. POLYETHYLENE GLYCOL [Concomitant]
     Active Substance: POLYETHYLENE GLYCOLS
  8. NUTROPIN AQ [Suspect]
     Active Substance: SOMATROPIN
     Indication: GROWTH FAILURE
     Route: 058
     Dates: start: 201101
  9. INSULIN [Concomitant]
     Active Substance: INSULIN NOS
     Route: 065

REACTIONS (8)
  - Constipation [Unknown]
  - Visual impairment [Unknown]
  - Upper-airway cough syndrome [Unknown]
  - Headache [Unknown]
  - Atopy [Unknown]
  - Hypothyroidism [Unknown]
  - Skin odour abnormal [Unknown]
  - Insulin-like growth factor increased [Unknown]
